FAERS Safety Report 8529654-5 (Version None)
Quarter: 2012Q3

REPORT INFORMATION
  Report Type: 
  Country: None (occurrence: None)
  Receive Date: 20120723
  Receipt Date: 20120712
  Transmission Date: 20120928
  Serious: Yes (Hospitalization)
  Sender: FDA-Public Use
  Company Number: FR-009507513-1207FRA004214

PATIENT

DRUGS (5)
  1. VANCOMYCIN [Suspect]
     Dosage: 1 G, UNK
     Dates: start: 20120209, end: 20120215
  2. VANCOMYCIN [Suspect]
     Dosage: 1.5 G, BID
     Route: 042
     Dates: start: 20120216, end: 20120312
  3. TIENAM 500MG/500MG, POUDRE POUR PERFUSION [Suspect]
     Dosage: 1 G, BID
     Route: 042
     Dates: start: 20120301, end: 20120312
  4. TIENAM 500MG/500MG, POUDRE POUR PERFUSION [Suspect]
     Dosage: 1 G, BID
     Route: 042
     Dates: start: 20120209, end: 20120210
  5. TECHNETIUM TC 99M OXIDRONATE [Suspect]
     Indication: RADIOISOTOPE SCAN
     Dosage: 1 DF, ONCE
     Route: 042
     Dates: start: 20120309, end: 20120309

REACTIONS (1)
  - ACUTE GENERALISED EXANTHEMATOUS PUSTULOSIS [None]
